FAERS Safety Report 4921021-6 (Version None)
Quarter: 2006Q1

REPORT INFORMATION
  Report Type: 
  Country: None (occurrence: None)
  Receive Date: 20060223
  Receipt Date: 20050620
  Transmission Date: 20060701
  Serious: Yes (Disabling)
  Sender: FDA-Public Use
  Company Number: US-MERCK-0506USA03015

PATIENT
  Age: 49 Year
  Sex: Female
  Weight: 73 kg

DRUGS (12)
  1. FOSAMAX [Suspect]
     Indication: BONE DISORDER
     Route: 048
     Dates: start: 20030101, end: 20030101
  2. ACCOLATE [Concomitant]
     Route: 065
  3. FLOVENT [Concomitant]
     Route: 065
  4. FLONASE [Concomitant]
     Route: 065
  5. ALBUTEROL [Concomitant]
     Route: 065
  6. IBUPROFEN [Concomitant]
     Route: 065
  7. DEZINAMIDE [Concomitant]
     Route: 065
  8. ROBAXIN [Concomitant]
     Route: 065
  9. ULTRAM [Concomitant]
     Route: 065
  10. DURACT [Concomitant]
     Route: 065
  11. DULCOLAX [Concomitant]
     Route: 065
  12. ALLERGENIC EXTRACT [Concomitant]
     Route: 065

REACTIONS (1)
  - AKINESIA [None]
